FAERS Safety Report 11275285 (Version 1)
Quarter: 2015Q3

REPORT INFORMATION
  Report Type: Spontaneous
  Country: FR (occurrence: FR)
  Receive Date: 20150716
  Receipt Date: 20150716
  Transmission Date: 20151125
  Serious: Yes (Hospitalization)
  Sender: FDA-Public Use
  Company Number: FR-ACCORD-032180

PATIENT
  Age: 67 Year
  Sex: Male

DRUGS (15)
  1. FLUOROURACIL ACCORD [Suspect]
     Active Substance: FLUOROURACIL
     Indication: PRODUCT USED FOR UNKNOWN INDICATION
     Dosage: SUBSEQUENTLY 2400 MG /M2, FOLFIRI REGIMEN
     Route: 042
     Dates: start: 20150506
  2. LEVOTHYROX [Concomitant]
     Active Substance: LEVOTHYROXINE
  3. EPREX [Concomitant]
     Active Substance: ERYTHROPOIETIN
  4. ZOPHREN [Concomitant]
     Active Substance: ONDANSETRON
  5. FOLINIC ACID [Suspect]
     Active Substance: LEUCOVORIN
     Indication: PRODUCT USED FOR UNKNOWN INDICATION
     Dosage: FOLFIRI REGIMEN
     Route: 042
     Dates: start: 20150506
  6. CLOPIDOGREL [Concomitant]
     Active Substance: CLOPIDOGREL BISULFATE
  7. GLIMEPIRIDE. [Concomitant]
     Active Substance: GLIMEPIRIDE
  8. FORTIMEL [Concomitant]
     Active Substance: DIETARY SUPPLEMENT
  9. RAMIPRIL. [Concomitant]
     Active Substance: RAMIPRIL
  10. AMIODARONE [Concomitant]
     Active Substance: AMIODARONE
  11. BISOPROLOL [Concomitant]
     Active Substance: BISOPROLOL
  12. IRINOTECAN MYLAN [Suspect]
     Active Substance: IRINOTECAN
     Indication: PRODUCT USED FOR UNKNOWN INDICATION
     Route: 042
     Dates: start: 20150506
  13. INNOHEP [Concomitant]
     Active Substance: TINZAPARIN SODIUM
  14. DUROGESIC [Concomitant]
     Active Substance: FENTANYL
  15. ESOMEPRAZOLE/ESOMEPRAZOLE MAGNESIUM/ESOMEPRAZOLE SODIUM [Concomitant]

REACTIONS (4)
  - Asthenia [Recovering/Resolving]
  - Mucous stools [Recovering/Resolving]
  - Abdominal pain [Recovering/Resolving]
  - Decreased appetite [Recovering/Resolving]

NARRATIVE: CASE EVENT DATE: 20150516
